FAERS Safety Report 7927083-6 (Version None)
Quarter: 2011Q4

REPORT INFORMATION
  Report Type: 
  Country: None (occurrence: None)
  Receive Date: 20111116
  Receipt Date: 20111103
  Transmission Date: 20120403
  Serious: Yes (Hospitalization)
  Sender: FDA-Public Use
  Company Number: 1000025385

PATIENT
  Age: 80 Year
  Sex: Male
  Weight: 78 kg

DRUGS (4)
  1. ROFLUMILAST (ROFLUMILAST) (TABLETS) [Suspect]
     Indication: CHRONIC OBSTRUCTIVE PULMONARY DISEASE
     Dosage: 1 DOSAGE FORM (1 DOSAGE FORMS, 1 IN 1 D)
     Dates: start: 20111029, end: 20111101
  2. ALLOPURINOL [Concomitant]
  3. SIMVASTATIN [Concomitant]
  4. MAGNESIUM (MAGNESIUM) (MAGNESIUM) [Concomitant]

REACTIONS (5)
  - URINARY RETENTION [None]
  - DELIRIUM [None]
  - TACHYCARDIA [None]
  - COGNITIVE DISORDER [None]
  - HYPOTENSION [None]
